FAERS Safety Report 8937612 (Version 2)
Quarter: 2012Q4

REPORT INFORMATION
  Report Type: Report from Study
  Country: FR (occurrence: FR)
  Receive Date: 20121130
  Receipt Date: 20121207
  Transmission Date: 20130627
  Serious: Yes (Hospitalization)
  Sender: FDA-Public Use
  Company Number: FR-ABBOTT-12P-056-1013012-00

PATIENT
  Age: 44 Year
  Sex: Female
  Weight: 82.5 kg

DRUGS (4)
  1. KALETRA TABLETS [Suspect]
     Indication: HIV INFECTION
     Dosage: 200/50 milligram
     Route: 048
     Dates: start: 20070202
  2. TOXOPLASMOSIS IMMUNIZATION [Concomitant]
     Indication: IMMUNISATION
  3. RUBELLA IMMUNIZATION [Concomitant]
     Indication: IMMUNISATION
  4. CMV IMMUNIZATION [Concomitant]
     Indication: IMMUNISATION

REACTIONS (1)
  - Premature rupture of membranes [Recovered/Resolved]
